FAERS Safety Report 9305794 (Version 1)
Quarter: 2013Q2

REPORT INFORMATION
  Report Type: Spontaneous
  Country: US (occurrence: US)
  Receive Date: 20130523
  Receipt Date: 20130523
  Transmission Date: 20140414
  Serious: No
  Sender: FDA-Public Use
  Company Number: US-PFIZER INC-2013154646

PATIENT
  Sex: Female

DRUGS (1)
  1. LEVOXYL [Suspect]
     Dosage: 50 UG, UNK

REACTIONS (4)
  - Product quality issue [Unknown]
  - Eyelid disorder [Unknown]
  - Skin disorder [Unknown]
  - Weight decreased [Unknown]
